FAERS Safety Report 7384941-1 (Version None)
Quarter: 2011Q1

REPORT INFORMATION
  Report Type: 
  Country: None (occurrence: None)
  Receive Date: 20110323
  Receipt Date: 20110309
  Transmission Date: 20110831
  Serious: Yes (Hospitalization)
  Sender: FDA-Public Use
  Company Number: JPI-P-013988

PATIENT
  Age: 43 Year
  Sex: Female

DRUGS (17)
  1. SIMVASTATIN [Concomitant]
  2. LORAZEPAM [Concomitant]
  3. TRAZODONE [Concomitant]
  4. ZONISAMIDE [Concomitant]
  5. SYNTHROID [Concomitant]
  6. CLONAZEPAM [Concomitant]
  7. ASPIRIN [Concomitant]
  8. ROPINIROLE HYDROCHLORIDE [Concomitant]
  9. ADDERALL 10 [Concomitant]
  10. DESVENLAFAXINE [Concomitant]
  11. XYREM [Suspect]
     Indication: CATAPLEXY
     Dosage: 2 GM (1 GM,2 IN 1 D), ORAL; 4 GM (2 GM,2 IN 1 D), ORAL; (6 GM, 1 D), ORAL; (3 GM FIRST DOSE/3.5 GM )
     Route: 048
     Dates: start: 20101206
  12. XYREM [Suspect]
     Indication: CATAPLEXY
     Dosage: 2 GM (1 GM,2 IN 1 D), ORAL; 4 GM (2 GM,2 IN 1 D), ORAL; (6 GM, 1 D), ORAL; (3 GM FIRST DOSE/3.5 GM )
     Route: 048
     Dates: start: 20100913, end: 20100901
  13. XYREM [Suspect]
     Indication: CATAPLEXY
     Dosage: 2 GM (1 GM,2 IN 1 D), ORAL; 4 GM (2 GM,2 IN 1 D), ORAL; (6 GM, 1 D), ORAL; (3 GM FIRST DOSE/3.5 GM )
     Route: 048
     Dates: start: 20100901, end: 20100101
  14. HYDROXYZINE [Concomitant]
  15. HYOSCYAMINE [Concomitant]
  16. ONDANSETRON [Concomitant]
  17. OXYCODONE AND ACETAMINOPHEN [Concomitant]

REACTIONS (5)
  - SUBCUTANEOUS ABSCESS [None]
  - DRUG INEFFECTIVE [None]
  - GASTROENTERITIS CLOSTRIDIAL [None]
  - DEHYDRATION [None]
  - CLOSTRIDIAL INFECTION [None]
